FAERS Safety Report 8524926-2 (Version None)
Quarter: 2012Q3

REPORT INFORMATION
  Report Type: 
  Country: None (occurrence: None)
  Receive Date: 20120720
  Receipt Date: 20120709
  Transmission Date: 20120928
  Serious: No
  Sender: FDA-Public Use
  Company Number: US-009507513-1207USA002662

PATIENT

DRUGS (1)
  1. STROMECTOL [Suspect]
     Indication: LICE INFESTATION
     Dosage: UNK, UNK
     Route: 048
     Dates: start: 20120609

REACTIONS (3)
  - PRURITUS [None]
  - OFF LABEL USE [None]
  - PARAESTHESIA [None]
